FAERS Safety Report 9322459 (Version 1)
Quarter: 2013Q2

REPORT INFORMATION
  Report Type: Spontaneous
  Country: RU (occurrence: RU)
  Receive Date: 20130531
  Receipt Date: 20130531
  Transmission Date: 20140414
  Serious: Yes (Death, Hospitalization)
  Sender: FDA-Public Use
  Company Number: RU-ACTELION-A-CH2013-83661

PATIENT
  Age: 52 Year
  Sex: Female

DRUGS (12)
  1. TRACLEER [Suspect]
     Indication: PULMONARY ARTERIAL HYPERTENSION
     Dosage: 125 MG, OD
     Route: 048
     Dates: start: 201304, end: 20130521
  2. TRACLEER [Suspect]
     Dosage: 125 MG, BID
     Route: 048
     Dates: start: 20110101, end: 20130201
  3. TRACLEER [Suspect]
     Dosage: 62.5 MG, BID
     Route: 048
     Dates: start: 20101111, end: 20101231
  4. TRACLEER [Suspect]
     Dosage: 62.5 MG, QD
     Route: 048
     Dates: start: 20130202, end: 20130303
  5. SILDENAFIL [Concomitant]
     Dosage: 50 MG, TID
  6. VENTAVIS BAYER SCHERING [Concomitant]
     Indication: PULMONARY ARTERIAL HYPERTENSION
     Dosage: 5 MCG, UNK
     Route: 055
  7. RENITEC [Concomitant]
  8. KETOROL [Concomitant]
  9. OXYGEN [Concomitant]
  10. CARDIOMAGNYL [Concomitant]
     Dosage: 75 MG, UNK
  11. TORASEMIDE [Concomitant]
     Dosage: 10 MG, OD
  12. VEROSPIRON [Concomitant]
     Dosage: 50 MG, UNK

REACTIONS (2)
  - Cardiac failure acute [Fatal]
  - Concomitant disease aggravated [Fatal]
